FAERS Safety Report 4680593-X (Version None)
Quarter: 2005Q2

REPORT INFORMATION
  Report Type: 
  Country: None (occurrence: None)
  Receive Date: 20050531
  Receipt Date: 20050419
  Transmission Date: 20051028
  Serious: Yes (Hospitalization)
  Sender: FDA-Public Use
  Company Number: 243164

PATIENT
  Age: 44 Year
  Sex: Male

DRUGS (1)
  1. NOVOLOG MIX 70/30 [Suspect]
     Indication: INSULIN-REQUIRING TYPE II DIABETES MELLITUS
     Dosage: 35 IU, QD, SUBCUTANEOUS
     Route: 058
     Dates: start: 20050301

REACTIONS (1)
  - HYPOGLYCAEMIC SEIZURE [None]
